FAERS Safety Report 20726433 (Version 1)
Quarter: 2022Q2

REPORT INFORMATION
  Report Type: Spontaneous
  Country: FR (occurrence: FR)
  Receive Date: 20220419
  Receipt Date: 20220419
  Transmission Date: 20220721
  Serious: Yes (Other)
  Sender: FDA-Public Use
  Company Number: FR-JAZZ-2021-FR-022892

PATIENT

DRUGS (1)
  1. XYREM [Suspect]
     Active Substance: SODIUM OXYBATE
     Indication: Product used for unknown indication
     Dosage: FREQUENCY: UNK
     Route: 048
     Dates: start: 2017

REACTIONS (1)
  - Drug dependence [Not Recovered/Not Resolved]

NARRATIVE: CASE EVENT DATE: 20210101
